FAERS Safety Report 7712990-X (Version None)
Quarter: 2011Q3

REPORT INFORMATION
  Report Type: 
  Country: None (occurrence: None)
  Receive Date: 20110826
  Receipt Date: 20110113
  Transmission Date: 20111222
  Serious: No
  Sender: FDA-Public Use
  Company Number: US-B.I. PHARMACEUTICALS,INC./RIDGEFIELD-2011-BP-01648BP

PATIENT
  Sex: Male

DRUGS (8)
  1. CATAPRES-TTS-1 [Suspect]
     Indication: HYPERTENSION
     Route: 061
  2. LISINOPRIL [Suspect]
     Indication: HYPERTENSION
     Route: 048
  3. TEKTURNA [Suspect]
     Indication: HYPERTENSION
  4. CRESTOR [Concomitant]
  5. POTASSIUM CHLORIDE [Concomitant]
  6. FUROSEMIDE [Suspect]
     Indication: HYPERTENSION
     Route: 048
  7. MINOXIDIL [Suspect]
     Indication: HYPERTENSION
     Route: 048
  8. BYSTOLIC [Suspect]
     Indication: HYPERTENSION

REACTIONS (2)
  - DRUG INEFFECTIVE [None]
  - ABDOMINAL DISTENSION [None]
